FAERS Safety Report 10177528 (Version 1)
Quarter: 2014Q2

REPORT INFORMATION
  Report Type: Spontaneous
  Country: US (occurrence: US)
  Receive Date: 20140516
  Receipt Date: 20140516
  Transmission Date: 20141212
  Serious: Yes (Hospitalization)
  Sender: FDA-Public Use
  Company Number: US-ASTRAZENECA-2014SE31313

PATIENT
  Age: 54 Year
  Sex: Female

DRUGS (3)
  1. LISINOPRIL [Suspect]
     Route: 048
  2. EXFORGE [Concomitant]
  3. BLOOD PRESSURE MEDICATION [Concomitant]
     Dosage: GENERIC

REACTIONS (8)
  - Loss of consciousness [Unknown]
  - Heart rate decreased [Unknown]
  - Cardiac failure [Unknown]
  - Hypotension [Unknown]
  - Hypertension [Unknown]
  - Adverse event [Unknown]
  - Dizziness [Unknown]
  - Headache [Unknown]
